FAERS Safety Report 12994557 (Version 3)
Quarter: 2016Q4

REPORT INFORMATION
  Report Type: Spontaneous
  Country: IT (occurrence: IT)
  Receive Date: 20161202
  Receipt Date: 20161213
  Transmission Date: 20170207
  Serious: Yes (Other)
  Sender: FDA-Public Use
  Company Number: PHHY2016IT162632

PATIENT
  Age: 48 Year
  Sex: Male

DRUGS (1)
  1. CICLOSPORIN [Suspect]
     Active Substance: CYCLOSPORINE
     Indication: DRY EYE
     Dosage: 1 DF, QD (1 DROP)
     Route: 057
     Dates: start: 20160916, end: 20161112

REACTIONS (6)
  - Condition aggravated [Recovering/Resolving]
  - Malaise [Recovering/Resolving]
  - Nausea [Recovering/Resolving]
  - Dry eye [Recovering/Resolving]
  - Headache [Recovering/Resolving]
  - Product use issue [Unknown]

NARRATIVE: CASE EVENT DATE: 20161117
